FAERS Safety Report 9412381 (Version 1)
Quarter: 2013Q3

REPORT INFORMATION
  Report Type: Spontaneous
  Country: None (occurrence: None)
  Receive Date: 20130708
  Receipt Date: 20130708
  Transmission Date: 20140515
  Serious: Yes (Other)
  Sender: FDA-Public Use
  Company Number: 09-AUR-09879

PATIENT
  Age: 24 Year
  Sex: Male

DRUGS (9)
  1. RISPERIDONE [Suspect]
     Indication: PERSECUTORY DELUSION
  2. RISPERIDONE [Suspect]
     Indication: HALLUCINATION
  3. RISPERIDONE [Suspect]
     Indication: FEELING ABNORMAL
  4. HALOPERIDOL [Suspect]
     Route: 042
  5. HALOPERIDOL [Suspect]
     Route: 042
  6. HALOPERIDOL [Suspect]
     Route: 042
  7. OLANZAPINE (OLANZAPINE) [Suspect]
  8. OLANZAPINE (OLANZAPINE) [Suspect]
  9. OLANZAPINE (OLANZAPINE) [Suspect]

REACTIONS (13)
  - Stupor [None]
  - Agitation [None]
  - Body temperature increased [None]
  - Blood creatine phosphokinase increased [None]
  - Mutism [None]
  - Unresponsive to stimuli [None]
  - Cogwheel rigidity [None]
  - Waxy flexibility [None]
  - Catatonia [None]
  - Neuroleptic malignant syndrome [None]
  - Urinary tract infection [None]
  - Grand mal convulsion [None]
  - Automatism [None]
